FAERS Safety Report 13514038 (Version 1)
Quarter: 2017Q2

REPORT INFORMATION
  Report Type: Spontaneous
  Country: US (occurrence: US)
  Receive Date: 20170504
  Receipt Date: 20170504
  Transmission Date: 20170830
  Serious: Yes (Other)
  Sender: FDA-Public Use
  Company Number: US-ASTRAZENECA-2017SE45898

PATIENT
  Age: 76 Year
  Sex: Female
  Weight: 34.5 kg

DRUGS (4)
  1. TUDORZA PRESSAIR [Suspect]
     Active Substance: ACLIDINIUM BROMIDE
     Indication: CHRONIC OBSTRUCTIVE PULMONARY DISEASE
     Dosage: 400 MCG ONE PUFF TWICE A DAY AND AS NEEDED
     Route: 055
     Dates: start: 2016, end: 20170425
  2. TUDORZA PRESSAIR [Suspect]
     Active Substance: ACLIDINIUM BROMIDE
     Indication: EMPHYSEMA
     Dosage: 400 MCG ONE PUFF TWICE A DAY AND AS NEEDED
     Route: 055
     Dates: start: 2016, end: 20170425
  3. ADVAIR HFA [Concomitant]
     Active Substance: FLUTICASONE PROPIONATE\SALMETEROL XINAFOATE
     Indication: CHRONIC OBSTRUCTIVE PULMONARY DISEASE
     Dosage: 500 MG/50 AT 1 PUFF TWICE A DAY
     Route: 055
     Dates: start: 2016
  4. ALBUTEROL. [Concomitant]
     Active Substance: ALBUTEROL
     Indication: DYSPNOEA
     Dosage: AS REQUIRED
     Route: 055

REACTIONS (6)
  - Oesophageal carcinoma [Not Recovered/Not Resolved]
  - Off label use [Not Recovered/Not Resolved]
  - Intentional device misuse [Not Recovered/Not Resolved]
  - Blood pressure fluctuation [Not Recovered/Not Resolved]
  - Product quality issue [Unknown]
  - Anxiety [Not Recovered/Not Resolved]

NARRATIVE: CASE EVENT DATE: 2016
